FAERS Safety Report 7774231-7 (Version None)
Quarter: 2011Q3

REPORT INFORMATION
  Report Type: 
  Country: None (occurrence: None)
  Receive Date: 20110921
  Receipt Date: 20110907
  Transmission Date: 20111222
  Serious: Yes (Disabling)
  Sender: FDA-Public Use
  Company Number: JP-2011-11469

PATIENT
  Age: 81 Year
  Sex: Male

DRUGS (2)
  1. FUROSEMIDE [Suspect]
     Dosage: 80 MG MILLIGRAM(S), DAILY DOSE, ORAL
     Route: 048
  2. SAMSCA [Suspect]
     Indication: CARDIAC FAILURE
     Dosage: 15 MG MILLIGRAM(S), DAILY DOSE, ORAL
     Route: 048

REACTIONS (1)
  - RENAL FAILURE [None]
